FAERS Safety Report 14864282 (Version 1)
Quarter: 2018Q2

REPORT INFORMATION
  Report Type: Spontaneous
  Country: US (occurrence: US)
  Receive Date: 20180508
  Receipt Date: 20180508
  Transmission Date: 20180711
  Serious: No
  Sender: FDA-Public Use
  Company Number: US-ALKERMES INC.-ALK-2017-003838

PATIENT
  Sex: Male
  Weight: 97.51 kg

DRUGS (3)
  1. VIVITROL [Suspect]
     Active Substance: NALTREXONE
     Indication: DRUG DEPENDENCE
     Dosage: 380 MG, QMO
     Route: 030
     Dates: start: 201511, end: 201603
  2. VIVITROL [Suspect]
     Active Substance: NALTREXONE
     Dosage: 380 MG, QMO
     Route: 030
     Dates: start: 201611, end: 201707
  3. VIVITROL [Suspect]
     Active Substance: NALTREXONE
     Dosage: 380 MG, QMO
     Route: 030
     Dates: start: 201708

REACTIONS (8)
  - Feeling of despair [Not Recovered/Not Resolved]
  - Headache [Not Recovered/Not Resolved]
  - Drug dependence [Not Recovered/Not Resolved]
  - Euphoric mood [Unknown]
  - Miosis [Unknown]
  - Depression [Not Recovered/Not Resolved]
  - Drug dose omission [Recovered/Resolved]
  - Lethargy [Not Recovered/Not Resolved]

NARRATIVE: CASE EVENT DATE: 201511
